FAERS Safety Report 17817403 (Version 3)
Quarter: 2020Q2

REPORT INFORMATION
  Report Type: Spontaneous
  Country: BR (occurrence: BR)
  Receive Date: 20200522
  Receipt Date: 20200617
  Transmission Date: 20200714
  Serious: Yes (Hospitalization)
  Sender: FDA-Public Use
  Company Number: BR-ROCHE-2599804

PATIENT
  Sex: Female
  Weight: 82.95 kg

DRUGS (5)
  1. RIVOTRIL [Concomitant]
     Active Substance: CLONAZEPAM
     Route: 048
  2. TEGRETOL [Concomitant]
     Active Substance: CARBAMAZEPINE
     Route: 048
  3. FLUOXETINE [Concomitant]
     Active Substance: FLUOXETINE HYDROCHLORIDE
     Route: 048
  4. KADCYLA [Suspect]
     Active Substance: ADO-TRASTUZUMAB EMTANSINE
     Indication: BREAST CANCER
     Dosage: EVERY 21 DAYS
     Route: 042
     Dates: start: 20190913
  5. LITHIUM CARBONATE. [Concomitant]
     Active Substance: LITHIUM CARBONATE
     Route: 048

REACTIONS (7)
  - Pyrexia [Recovered/Resolved]
  - Administration site extravasation [Unknown]
  - Feeling hot [Recovered/Resolved]
  - Cellulitis [Recovered/Resolved]
  - Erythema [Recovered/Resolved]
  - Breast cellulitis [Recovered/Resolved]
  - Pain [Recovered/Resolved]
